FAERS Safety Report 8448448-2 (Version None)
Quarter: 2012Q2

REPORT INFORMATION
  Report Type: 
  Country: None (occurrence: None)
  Receive Date: 20120619
  Receipt Date: 20120614
  Transmission Date: 20120825
  Serious: Yes (Death, Life-Threatening, Hospitalization, Other)
  Sender: FDA-Public Use
  Company Number: PHHO2009JP17599

PATIENT
  Sex: Male
  Weight: 73 kg

DRUGS (21)
  1. MUCOSTA [Concomitant]
  2. LENDORMIN [Concomitant]
  3. CLARITHROMYCIN [Concomitant]
  4. DIAZEPAM [Concomitant]
  5. SODIUM CHLORIDE [Concomitant]
  6. SENNOSIDE [Concomitant]
     Indication: CONSTIPATION
  7. OMEPRAZOLE [Concomitant]
  8. ONEALFA [Concomitant]
     Indication: OSTEOPOROSIS
  9. SOLU-MEDROL [Concomitant]
  10. NITRAZEPAM [Concomitant]
  11. DEPAKENE [Concomitant]
  12. LAC B [Concomitant]
  13. PREDNISOLONE [Concomitant]
  14. AMOXICILLIN [Concomitant]
  15. LOXONIN [Concomitant]
     Indication: BACK PAIN
  16. FAMOTIDINE [Concomitant]
  17. MAGNESIUM OXIDE [Concomitant]
     Indication: CONSTIPATION
  18. ZONISAMIDE [Concomitant]
  19. GILENYA [Suspect]
     Indication: MULTIPLE SCLEROSIS
     Dosage: 0.5 MG
     Route: 048
     Dates: start: 20080226, end: 20081112
  20. LIORESAL [Concomitant]
     Indication: MULTIPLE SCLEROSIS RELAPSE
  21. SELBEX [Concomitant]

REACTIONS (60)
  - THROMBOCYTOPENIA [None]
  - HAEMORRHAGIC DIATHESIS [None]
  - COAGULOPATHY [None]
  - PNEUMONIA ASPIRATION [None]
  - WHITE BLOOD CELL COUNT DECREASED [None]
  - BETA 2 MICROGLOBULIN INCREASED [None]
  - BRAIN MIDLINE SHIFT [None]
  - HISTOLOGY ABNORMAL [None]
  - DIFFUSE LARGE B-CELL LYMPHOMA [None]
  - LYMPHOPROLIFERATIVE DISORDER [None]
  - PYREXIA [None]
  - HAEMANGIOMA [None]
  - THROMBOSIS [None]
  - RASH [None]
  - MYCOSIS FUNGOIDES [None]
  - DEPRESSED LEVEL OF CONSCIOUSNESS [None]
  - OXYGEN SATURATION DECREASED [None]
  - PUPILS UNEQUAL [None]
  - BRAIN MASS [None]
  - NUCLEAR MAGNETIC RESONANCE IMAGING ABNORMAL [None]
  - HELICOBACTER INFECTION [None]
  - PAPULE [None]
  - PERICARDIAL EFFUSION [None]
  - MORAXELLA INFECTION [None]
  - INTERSTITIAL LUNG DISEASE [None]
  - PLEURAL EFFUSION [None]
  - LEUKAEMIC INFILTRATION RENAL [None]
  - EPSTEIN-BARR VIRUS ANTIBODY POSITIVE [None]
  - HEPATIC MASS [None]
  - PLATELET COUNT DECREASED [None]
  - ATELECTASIS [None]
  - NECROSIS [None]
  - INTRACRANIAL PRESSURE INCREASED [None]
  - HYDROCEPHALUS [None]
  - DYSPHAGIA [None]
  - CENTRAL NERVOUS SYSTEM LESION [None]
  - ASCITES [None]
  - LIVER DISORDER [None]
  - BILIARY TRACT DISORDER [None]
  - PULMONARY MASS [None]
  - IMMUNODEFICIENCY [None]
  - GASTRIC POLYPS [None]
  - IMMUNE SYSTEM DISORDER [None]
  - HYPERTROPHY [None]
  - LUNG NEOPLASM [None]
  - PNEUMONIA STAPHYLOCOCCAL [None]
  - HEPATOSPLENOMEGALY [None]
  - OESOPHAGEAL NEOPLASM [None]
  - CELL MARKER INCREASED [None]
  - BRAIN OEDEMA [None]
  - HAEMORRHAGE [None]
  - BRAIN HERNIATION [None]
  - LYMPHANGIOMA [None]
  - PANCYTOPENIA [None]
  - LIPOMA [None]
  - SPUTUM RETENTION [None]
  - HERPES ZOSTER [None]
  - CONVULSION [None]
  - RENAL MASS [None]
  - SPERMATOGENESIS ABNORMAL [None]
